FAERS Safety Report 8806535 (Version 1)
Quarter: 2012Q4

REPORT INFORMATION
  Report Type: Spontaneous
  Country: US (occurrence: None)
  Receive Date: 20120918
  Receipt Date: 20120918
  Transmission Date: 20130627
  Serious: Yes (Death, Other)
  Sender: FDA-Public Use
  Company Number: FK201202614

PATIENT
  Age: 8 Year
  Sex: Female

DRUGS (3)
  1. MORPHINE SULPHATE [Suspect]
     Indication: PAIN
     Dosage: Prior to hospitalization, Oral
     Route: 048
  2. MORPHINE SULPHATE [Suspect]
     Indication: PAIN
     Dosage: PCA, 2mg/hr, 1.5mg/hr, intravenous (not otherwise specified)
     Route: 042
  3. FENTANYL TRANSDEMAL SYSTEM [Suspect]
     Route: 062

REACTIONS (3)
  - Constipation [None]
  - Nausea [None]
  - Drug ineffective [None]
